FAERS Safety Report 9365387 (Version 3)
Quarter: 2015Q4

REPORT INFORMATION
  Report Type: Report from Study
  Country: US (occurrence: US)
  Receive Date: 20130625
  Receipt Date: 20151112
  Transmission Date: 20160305
  Serious: Yes (Other)
  Sender: FDA-Public Use
  Company Number: US-ROCHE-1240449

PATIENT

DRUGS (2)
  1. AUY922 [Suspect]
     Active Substance: AUY922
     Indication: NEOPLASM
     Dosage: 22-70 MG/M2
     Route: 042
  2. CAPECITABINE. [Suspect]
     Active Substance: CAPECITABINE
     Indication: NEOPLASM
     Dosage: 1000-1250 MG/M2 ON DAYS 1-14 OF 21-DAY CYCLES
     Route: 048

REACTIONS (9)
  - Bone marrow failure [Unknown]
  - Decreased appetite [Unknown]
  - Visual impairment [Recovered/Resolved]
  - Neutropenia [Unknown]
  - Diarrhoea [Unknown]
  - Fatigue [Unknown]
  - Vision blurred [Recovered/Resolved]
  - Palmar-plantar erythrodysaesthesia syndrome [Unknown]
  - Rash [Unknown]
